FAERS Safety Report 10065139 (Version 1)
Quarter: 2014Q2

REPORT INFORMATION
  Report Type: Spontaneous
  Country: GB (occurrence: GB)
  Receive Date: 20140408
  Receipt Date: 20140408
  Transmission Date: 20141212
  Serious: Yes (Other)
  Sender: FDA-Public Use
  Company Number: PHHY2014GB038171

PATIENT
  Age: 78 Year
  Sex: Male
  Weight: 59 kg

DRUGS (16)
  1. ALENDRONIC ACID [Suspect]
     Indication: OSTEOPOROSIS PROPHYLAXIS
     Dosage: 70 MG, UNK
     Route: 048
     Dates: start: 20140219, end: 20140226
  2. SERETIDE [Concomitant]
     Dosage: 1 DF, BID
     Route: 055
  3. ADCAL-D3 [Concomitant]
     Dosage: 1 DF, BID
  4. ORAMORPH [Concomitant]
     Indication: DYSPNOEA
     Dosage: 2.5 ML, UNK
     Route: 048
  5. CO-CODAMOL [Concomitant]
  6. SALBUTAMOL [Concomitant]
     Dosage: 2 DF, 100MCG/PUFF
     Route: 055
  7. DOCUSATE SODIUM [Concomitant]
     Dosage: 100 MG, BID
  8. THEOPHYLLINE [Concomitant]
     Dosage: 250 MG, BID
  9. SALBUTAMOL [Concomitant]
     Dosage: 1 DF, QID, 2.5MG/2.5ML
  10. RANITIDINE [Concomitant]
     Dosage: 150 MG, QD
  11. PREDNISOLONE [Concomitant]
     Dosage: 30 MG, QD
  12. PREDNISOLONE [Concomitant]
     Dosage: 5 MG, QD
  13. TIOTROPIUM [Concomitant]
     Dosage: 18 UG, QD
     Route: 055
  14. SIMVASTATIN [Concomitant]
     Dosage: 20 MG, QD
  15. DOXYCYCLINE HYCLATE [Concomitant]
     Dosage: 100 MG, UNK
  16. IPRATROPIUM BROMIDE [Concomitant]
     Dosage: 1 DF, TID, 250MCG/ML

REACTIONS (2)
  - Rash [Recovered/Resolved]
  - Dyspnoea [Recovered/Resolved]
